FAERS Safety Report 4665197-7 (Version None)
Quarter: 2005Q2

REPORT INFORMATION
  Report Type: 
  Country: None (occurrence: None)
  Receive Date: 20050517
  Receipt Date: 20050502
  Transmission Date: 20051028
  Serious: Yes (Hospitalization, Other)
  Sender: FDA-Public Use
  Company Number: USA050392238

PATIENT
  Age: 78 Year
  Sex: Female
  Weight: 63 kg

DRUGS (9)
  1. FORTEO [Suspect]
     Indication: OSTEOPOROSIS
     Dosage: 800 UG
     Dates: start: 20050302
  2. VERAPAMIL [Concomitant]
  3. ALBUTEROL [Concomitant]
  4. ATROVENT [Concomitant]
  5. PRILOSEC [Concomitant]
  6. DETROL LA [Concomitant]
  7. ACETYLSALICYLIC ACID SRT [Concomitant]
  8. LIPITOR [Concomitant]
  9. FORADIL [Concomitant]

REACTIONS (9)
  - BLOOD CREATININE INCREASED [None]
  - BLOOD UREA INCREASED [None]
  - DYSPEPSIA [None]
  - GASTROOESOPHAGEAL REFLUX DISEASE [None]
  - MEDICATION ERROR [None]
  - OVERDOSE [None]
  - PEPTIC ULCER [None]
  - PHARMACEUTICAL PRODUCT COMPLAINT [None]
  - UPPER GASTROINTESTINAL HAEMORRHAGE [None]
